FAERS Safety Report 18886538 (Version 3)
Quarter: 2021Q3

REPORT INFORMATION
  Report Type: Spontaneous
  Country: CA (occurrence: CA)
  Receive Date: 20210212
  Receipt Date: 20210824
  Transmission Date: 20211014
  Serious: Yes (Other)
  Sender: FDA-Public Use
  Company Number: CA-SA-2021SA029452

PATIENT
  Age: 40 Year
  Sex: Male

DRUGS (44)
  1. GABAPENTIN. [Suspect]
     Active Substance: GABAPENTIN
     Indication: PRODUCT USED FOR UNKNOWN INDICATION
     Dosage: 100 MG, QD
  2. GABAPENTIN. [Suspect]
     Active Substance: GABAPENTIN
  3. REBIF [Suspect]
     Active Substance: INTERFERON BETA-1A
     Indication: PRODUCT USED FOR UNKNOWN INDICATION
  4. FAMPYRA [Concomitant]
     Active Substance: DALFAMPRIDINE
  5. VITAMIN D3 [Concomitant]
     Active Substance: CHOLECALCIFEROL
  6. BISOPROLOL FUMARATE/HYDROCHLOROTHIAZIDE [Suspect]
     Active Substance: BISOPROLOL FUMARATE\HYDROCHLOROTHIAZIDE
     Indication: SECONDARY PROGRESSIVE MULTIPLE SCLEROSIS
     Dosage: UNK
     Route: 048
  7. INTERFERON BETA NOS [Suspect]
     Active Substance: INTERFERON BETA
     Indication: PRODUCT USED FOR UNKNOWN INDICATION
     Route: 058
  8. TECFIDERA [Suspect]
     Active Substance: DIMETHYL FUMARATE
     Indication: PRODUCT USED FOR UNKNOWN INDICATION
  9. ALLOPURINOL;BENZBROMARONE [Concomitant]
  10. ASPIRIN [ACETYLSALICYLIC ACID] [Concomitant]
     Active Substance: ASPIRIN
  11. CALCIUM [Concomitant]
     Active Substance: CALCIUM
  12. ACETYLSALICYLIC ACID;CODEINE [Concomitant]
  13. RABEPRAZOLE [Suspect]
     Active Substance: RABEPRAZOLE
     Indication: SECONDARY PROGRESSIVE MULTIPLE SCLEROSIS
     Dosage: 20 MG, QD
     Route: 048
  14. ATIVAN [Concomitant]
     Active Substance: LORAZEPAM
  15. RABEPRAZOLE [Concomitant]
     Active Substance: RABEPRAZOLE
  16. ACETYLSALICYLIC ACID;CODEINE [Concomitant]
  17. FLOMAX [Suspect]
     Active Substance: TAMSULOSIN HYDROCHLORIDE
     Indication: SECONDARY PROGRESSIVE MULTIPLE SCLEROSIS
     Route: 048
  18. AMLODIPINE [Suspect]
     Active Substance: AMLODIPINE BESYLATE
     Indication: SECONDARY PROGRESSIVE MULTIPLE SCLEROSIS
     Dosage: 10 MG, QD
     Route: 048
  19. BACLOFEN. [Suspect]
     Active Substance: BACLOFEN
     Indication: PRODUCT USED FOR UNKNOWN INDICATION
     Dosage: 30 MG, Q8H
     Route: 048
  20. BISOPROLOL FUMARATE. [Suspect]
     Active Substance: BISOPROLOL FUMARATE
     Indication: SECONDARY PROGRESSIVE MULTIPLE SCLEROSIS
     Route: 048
  21. AMLODIPINE BESILATE [Suspect]
     Active Substance: AMLODIPINE BESYLATE
     Indication: SECONDARY PROGRESSIVE MULTIPLE SCLEROSIS
     Dosage: 10 MG, QD
     Route: 048
  22. RABEPRAZOLE SODIUM. [Suspect]
     Active Substance: RABEPRAZOLE SODIUM
     Indication: SECONDARY PROGRESSIVE MULTIPLE SCLEROSIS
     Dosage: 20 MG, QD
     Route: 048
  23. MAYZENT [Suspect]
     Active Substance: SIPONIMOD
     Indication: SECONDARY PROGRESSIVE MULTIPLE SCLEROSIS
     Dosage: 3 DF, QD
  24. DOXEPIN HYDROCHLORIDE. [Suspect]
     Active Substance: DOXEPIN HYDROCHLORIDE
     Indication: PRODUCT USED FOR UNKNOWN INDICATION
     Dosage: 6 MG, QD
  25. VITAMIN B COMPLEX [Concomitant]
     Active Substance: CYANOCOBALAMIN\DEXPANTHENOL\NIACINAMIDE\PYRIDOXINE HYDROCHLORIDE\RIBOFLAVIN 5^-PHOSPHATE SODIUM\THIAMINE HYDROCHLORIDE\VITAMIN B COMPLEX
  26. LORAZEPAM. [Suspect]
     Active Substance: LORAZEPAM
     Indication: PRODUCT USED FOR UNKNOWN INDICATION
     Route: 048
  27. DIMETHYL FUMARATE [Suspect]
     Active Substance: DIMETHYL FUMARATE
     Indication: PRODUCT USED FOR UNKNOWN INDICATION
     Dosage: UNK
  28. ALLOPURINOL;BENZBROMARONE [Concomitant]
  29. VITAMIN D3 [Concomitant]
     Active Substance: CHOLECALCIFEROL
  30. TEMAZEPAM. [Suspect]
     Active Substance: TEMAZEPAM
  31. BACLOFEN. [Suspect]
     Active Substance: BACLOFEN
     Dosage: 10 MG, QD
     Route: 048
  32. PRAMIPEXOLE HYDROCHLORIDE [Suspect]
     Active Substance: PRAMIPEXOLE DIHYDROCHLORIDE
     Indication: SECONDARY PROGRESSIVE MULTIPLE SCLEROSIS
     Dosage: 0.25 MG, QD
     Route: 048
  33. ATIVAN [Concomitant]
     Active Substance: LORAZEPAM
  34. VITAMIN B COMPLEX [CYANOCOBALAMIN] [Concomitant]
  35. FAMPYRA [Concomitant]
     Active Substance: DALFAMPRIDINE
  36. CALCIUM D PANTOTHENATE [Concomitant]
     Active Substance: CALCIUM PANTOTHENATE
     Dosage: UNK
  37. LORAZEPAM. [Suspect]
     Active Substance: LORAZEPAM
     Indication: PRODUCT USED FOR UNKNOWN INDICATION
     Dosage: UNK
     Route: 048
  38. REBIF [Suspect]
     Active Substance: INTERFERON BETA-1A
     Dosage: UNK UNK. UNKNOWN FREQ; UNKNOWN
  39. RABEPRAZOLE SODIUM. [Concomitant]
     Active Substance: RABEPRAZOLE SODIUM
     Dosage: UNK
  40. COVERSYL PLUS [INDAPAMIDE;PERINDOPRIL ERBUMINE] [Concomitant]
     Active Substance: INDAPAMIDE\PERINDOPRIL
     Dosage: UNK
  41. ROSUVASTATIN CALCIUM. [Suspect]
     Active Substance: ROSUVASTATIN CALCIUM
     Indication: PRODUCT USED FOR UNKNOWN INDICATION
     Dosage: 5 MG, QD
     Route: 048
  42. BISOPROLOL SALT NOT SPECIFIED [Suspect]
     Active Substance: BISOPROLOL
     Indication: SECONDARY PROGRESSIVE MULTIPLE SCLEROSIS
     Dosage: UNK UNK, UNKNOWN FREQ;
     Route: 048
  43. ASPIRIN [ACETYLSALICYLIC ACID] [Concomitant]
     Active Substance: ASPIRIN
  44. CALCIUM [Concomitant]
     Active Substance: CALCIUM

REACTIONS (25)
  - Relapsing-remitting multiple sclerosis [Unknown]
  - Bradycardia [Unknown]
  - Movement disorder [Unknown]
  - Erectile dysfunction [Unknown]
  - Fall [Unknown]
  - Memory impairment [Unknown]
  - Micturition urgency [Unknown]
  - Balance disorder [Unknown]
  - Dysarthria [Unknown]
  - Insomnia [Unknown]
  - Dizziness [Unknown]
  - Needle fatigue [Unknown]
  - Central nervous system lesion [Unknown]
  - Ataxia [Unknown]
  - Multiple sclerosis relapse [Unknown]
  - Pain [Unknown]
  - Anxiety [Unknown]
  - Muscle spasticity [Unknown]
  - Nocturia [Unknown]
  - Product use in unapproved indication [Unknown]
  - Gait spastic [Unknown]
  - Hypoaesthesia [Unknown]
  - Monoparesis [Unknown]
  - Pollakiuria [Unknown]
  - Hypertonic bladder [Unknown]
